FAERS Safety Report 13249395 (Version 5)
Quarter: 2017Q4

REPORT INFORMATION
  Report Type: Spontaneous
  Country: US (occurrence: US)
  Receive Date: 20170218
  Receipt Date: 20171226
  Transmission Date: 20180320
  Serious: No
  Sender: FDA-Public Use
  Company Number: US-TEVA-727504ACC

PATIENT
  Age: 49 Year
  Sex: Female

DRUGS (24)
  1. NEURONTIN [Concomitant]
     Active Substance: GABAPENTIN
  2. CITALOPRAM [Concomitant]
     Active Substance: CITALOPRAM HYDROBROMIDE
  3. GABAPENTIN. [Concomitant]
     Active Substance: GABAPENTIN
  4. MAGNESIUM [Concomitant]
     Active Substance: MAGNESIUM
  5. CRESTOR [Concomitant]
     Active Substance: ROSUVASTATIN CALCIUM
  6. OMEPRAZOLE. [Concomitant]
     Active Substance: OMEPRAZOLE
  7. COPAXONE [Suspect]
     Active Substance: GLATIRAMER ACETATE
     Indication: MULTIPLE SCLEROSIS
     Dosage: PEN
     Route: 058
     Dates: start: 20150528
  8. VITAMIN C [Concomitant]
     Active Substance: ASCORBIC ACID
  9. ADDERALL [Concomitant]
     Active Substance: AMPHETAMINE ASPARTATE\AMPHETAMINE SULFATE\DEXTROAMPHETAMINE SACCHARATE\DEXTROAMPHETAMINE SULFATE
  10. ALENDRONATE [Concomitant]
     Active Substance: ALENDRONATE SODIUM
  11. LISINOPRIL. [Concomitant]
     Active Substance: LISINOPRIL
  12. PROPANOLOL [Concomitant]
     Active Substance: PROPRANOLOL HYDROCHLORIDE
  13. SYSTANE (HYPROMELLOSE 2910 (4000 MPA.S)) [Concomitant]
     Active Substance: HYPROMELLOSE 2910 (4000 MPA.S)
  14. VITAMIN D3 [Concomitant]
     Active Substance: CHOLECALCIFEROL
  15. CINNAMON. [Concomitant]
     Active Substance: CINNAMON
  16. MEMANTINE. [Concomitant]
     Active Substance: MEMANTINE
  17. ROSUVASTATIN. [Concomitant]
     Active Substance: ROSUVASTATIN
  18. FLUOROMETHOL [Concomitant]
     Active Substance: FLUOROMETHOLONE
  19. CELEXA [Concomitant]
     Active Substance: CITALOPRAM HYDROBROMIDE
  20. CLONAZEPAM. [Concomitant]
     Active Substance: CLONAZEPAM
  21. DESLORATADINE. [Concomitant]
     Active Substance: DESLORATADINE
  22. HYDROCODONE [Concomitant]
     Active Substance: HYDROCODONE
  23. NEXIUM [Concomitant]
     Active Substance: ESOMEPRAZOLE MAGNESIUM
  24. RESTASIS [Concomitant]
     Active Substance: CYCLOSPORINE

REACTIONS (6)
  - Gait disturbance [Not Recovered/Not Resolved]
  - Depression [Not Recovered/Not Resolved]
  - Gait disturbance [Unknown]
  - Vision blurred [Unknown]
  - Memory impairment [Unknown]
  - Motor dysfunction [Unknown]

NARRATIVE: CASE EVENT DATE: 201612
